FAERS Safety Report 23675343 (Version 2)
Quarter: 2024Q1

REPORT INFORMATION
  Report Type: Spontaneous
  Country: CN (occurrence: CN)
  Receive Date: 20240327
  Receipt Date: 20240329
  Transmission Date: 20240410
  Serious: Yes (Hospitalization, Other)
  Sender: FDA-Public Use
  Company Number: CN-ELI_LILLY_AND_COMPANY-CN202403010353

PATIENT
  Age: 27 Year
  Sex: Female
  Weight: 80 kg

DRUGS (4)
  1. DULOXETINE HYDROCHLORIDE [Suspect]
     Active Substance: DULOXETINE HYDROCHLORIDE
     Indication: Suicidal ideation
     Dosage: 50 DOSAGE FORM, SINGLE
     Route: 048
     Dates: start: 20240214, end: 20240214
  2. FLUOXETINE HYDROCHLORIDE [Suspect]
     Active Substance: FLUOXETINE HYDROCHLORIDE
     Indication: Suicidal ideation
     Dosage: 50 DOSAGE FORM, SINGLE
     Route: 048
     Dates: start: 20240214, end: 20240214
  3. LAMOTRIGINE [Suspect]
     Active Substance: LAMOTRIGINE
     Indication: Suicidal ideation
     Dosage: 50 DOSAGE FORM, SINGLE
     Route: 048
     Dates: start: 20240214, end: 20240214
  4. FLUVOXAMINE MALEATE [Suspect]
     Active Substance: FLUVOXAMINE MALEATE
     Indication: Suicidal ideation
     Dosage: 50 DOSAGE FORM, SINGLE
     Route: 048
     Dates: start: 20240214, end: 20240214

REACTIONS (5)
  - Renal failure [Recovering/Resolving]
  - Blood creatine phosphokinase increased [Recovering/Resolving]
  - Somnolence [Recovering/Resolving]
  - Intentional product misuse [Unknown]
  - Intentional overdose [Unknown]

NARRATIVE: CASE EVENT DATE: 20240214
